FAERS Safety Report 8841831 (Version 1)
Quarter: 2012Q4

REPORT INFORMATION
  Report Type: 
  Country: US (occurrence: US)
  Receive Date: 20121016
  Receipt Date: 20121016
  Transmission Date: 20130627
  Serious: Yes (Other)
  Sender: FDA-Public Use
  Company Number: US-PAR PHARMACEUTICAL, INC-2012SCPR004647

PATIENT

DRUGS (2)
  1. BUPROPION HCL XL [Suspect]
     Indication: DEPRESSION
     Dosage: One tablet daily
     Route: 048
     Dates: start: 20120927, end: 20120929
  2. BUPROPION HCL XL [Suspect]
     Dosage: UNK, Unknown
     Route: 065

REACTIONS (6)
  - Hallucination, visual [Recovered/Resolved]
  - Sleep terror [Recovered/Resolved]
  - Nightmare [Recovered/Resolved]
  - Sleep disorder [Recovered/Resolved]
  - Anxiety [Recovered/Resolved]
  - Product quality issue [Unknown]
